FAERS Safety Report 9893130 (Version 1)
Quarter: 2014Q1

REPORT INFORMATION
  Report Type: Spontaneous
  Country: FR (occurrence: FR)
  Receive Date: 20140213
  Receipt Date: 20140213
  Transmission Date: 20141002
  Serious: Yes (Life-Threatening, Hospitalization)
  Sender: FDA-Public Use
  Company Number: FR-ROCHE-1347809

PATIENT
  Age: 42 Year
  Sex: Male

DRUGS (5)
  1. RIVOTRIL [Suspect]
     Indication: PRODUCT USED FOR UNKNOWN INDICATION
     Dosage: 2 MG IN THE MORNING AND 1 MG IN THE EVENING
     Route: 048
  2. LYRICA [Suspect]
     Indication: PRODUCT USED FOR UNKNOWN INDICATION
     Route: 048
  3. AMITRIPTYLINE [Suspect]
     Indication: PRODUCT USED FOR UNKNOWN INDICATION
     Route: 065
  4. HYPNOVEL (INJ) [Concomitant]
     Indication: SEDATION
     Route: 065
  5. SUFENTANIL [Concomitant]
     Indication: SEDATION

REACTIONS (2)
  - Coma [Recovered/Resolved]
  - Hypothermia [Recovered/Resolved]
